FAERS Safety Report 26090406 (Version 2)
Quarter: 2025Q4

REPORT INFORMATION
  Report Type: Spontaneous
  Country: GB (occurrence: GB)
  Receive Date: 20251126
  Receipt Date: 20251216
  Transmission Date: 20260118
  Serious: Yes (Other)
  Sender: OCTAPHARMA
  Company Number: GB-OCTA-2025001073

PATIENT
  Age: 15 Year
  Sex: Female

DRUGS (1)
  1. OCTAPLAS [Suspect]
     Active Substance: PLASMA PROTEIN FRACTION (HUMAN)
     Indication: Factor V deficiency
     Route: 042

REACTIONS (1)
  - Factor V inhibition [Unknown]

NARRATIVE: CASE EVENT DATE: 20231113
